FAERS Safety Report 6125211-9 (Version None)
Quarter: 2009Q1

REPORT INFORMATION
  Report Type: 
  Country: None (occurrence: None)
  Receive Date: 20090318
  Receipt Date: 20090303
  Transmission Date: 20090719
  Serious: Yes (Hospitalization)
  Sender: FDA-Public Use
  Company Number: 2009000691

PATIENT
  Age: 70 Year
  Sex: Female
  Weight: 73 kg

DRUGS (7)
  1. TARCEVA [Suspect]
     Indication: NEOPLASM MALIGNANT
     Dosage: (100 MG,QD), ORAL
     Route: 048
     Dates: start: 20090129, end: 20090205
  2. GEMCITABINE [Suspect]
     Indication: NEOPLASM MALIGNANT
     Dosage: (5 MG/KG), INTRAVENOUS
     Route: 042
     Dates: start: 20090122, end: 20090122
  3. GEMCITABINE [Suspect]
     Indication: NEOPLASM MALIGNANT
     Dosage: (40 MG,QD/14 DAYS-7 DAYS REST X 21 DAYS CYCLES), ORAL
     Route: 048
     Dates: start: 20090129
  4. ACETAMINOPHEN [Concomitant]
  5. OXAZEPAM [Concomitant]
  6. FENTANYL-100 [Concomitant]
  7. PRIMPERAN TAB [Concomitant]

REACTIONS (1)
  - ATRIAL FIBRILLATION [None]
